FAERS Safety Report 13283814 (Version 6)
Quarter: 2017Q3

REPORT INFORMATION
  Report Type: Spontaneous
  Country: KR (occurrence: KR)
  Receive Date: 20170301
  Receipt Date: 20170807
  Transmission Date: 20171127
  Serious: Yes (Hospitalization, Other)
  Sender: FDA-Public Use
  Company Number: KR-009507513-1702KOR011016

PATIENT
  Age: 65 Year
  Sex: Male
  Weight: 55 kg

DRUGS (32)
  1. OLMESARTAN MEDOXOMIL. [Concomitant]
     Active Substance: OLMESARTAN MEDOXOMIL
     Indication: HYPERTENSION
     Dosage: 1 TABLET (40 MG), QD
     Route: 048
     Dates: start: 20160909
  2. NEXIUM [Concomitant]
     Active Substance: ESOMEPRAZOLE MAGNESIUM
     Indication: PROPHYLAXIS AGAINST GASTROINTESTINAL ULCER
     Dosage: 1 TABLET, QD
     Route: 048
     Dates: start: 20160908
  3. ALOXI [Concomitant]
     Active Substance: PALONOSETRON HYDROCHLORIDE
     Dosage: 0.25 MG, ONCE
     Route: 042
     Dates: start: 20161018, end: 20161018
  4. DIFLUCAN [Concomitant]
     Active Substance: FLUCONAZOLE
     Indication: INFECTION PROPHYLAXIS
     Dosage: 1 CAPSULE (50 MG), ONCE
     Route: 048
     Dates: start: 20161005, end: 20161005
  5. MAGNESIN (MAGNESIUM SULFATE) [Concomitant]
     Dosage: 10 ML, BID
     Route: 042
     Dates: start: 20161018, end: 20161018
  6. NORVASC [Concomitant]
     Active Substance: AMLODIPINE BESYLATE
     Indication: HYPERTENSION
     Dosage: 1 TABLET (10 MG), QD
     Route: 048
     Dates: start: 2008
  7. EMEND (FOSAPREPITANT DIMEGLUMINE) [Suspect]
     Active Substance: FOSAPREPITANT DIMEGLUMINE
     Dosage: 150 MG, ONCE
     Route: 042
     Dates: start: 20161018, end: 20161018
  8. HEPA-MERZ [Concomitant]
     Indication: PROPHYLAXIS
     Dosage: 3.6 G, QD
     Route: 048
     Dates: start: 20160912
  9. MACPERAN [Concomitant]
     Active Substance: METOCLOPRAMIDE HYDROCHLORIDE
     Dosage: 1 TABLET, TID
     Route: 048
     Dates: start: 20161018, end: 20161022
  10. EMEND (FOSAPREPITANT DIMEGLUMINE) [Suspect]
     Active Substance: FOSAPREPITANT DIMEGLUMINE
     Indication: PROPHYLAXIS OF NAUSEA AND VOMITING
     Dosage: 150 MG, ONCE
     Route: 042
     Dates: start: 20160922, end: 20160922
  11. ADIPAM [Concomitant]
     Indication: PROPHYLAXIS
     Dosage: 1 TABLET (10 MG),TID
     Route: 048
     Dates: start: 20160908, end: 20160912
  12. AMLODIPINE BESYLATE (+) OLMESARTAN MEDOXOMIL [Concomitant]
     Active Substance: AMLODIPINE BESYLATE\OLMESARTAN MEDOXOMIL
     Indication: HYPERTENSION
     Dosage: 1 TABLET (10/40MG), QD
     Route: 048
     Dates: start: 20160908
  13. ALOXI [Concomitant]
     Active Substance: PALONOSETRON HYDROCHLORIDE
     Indication: PROPHYLAXIS OF NAUSEA AND VOMITING
     Dosage: 5 ML, ONCE
     Route: 042
     Dates: start: 20160922, end: 20160922
  14. ADIPAM [Concomitant]
     Dosage: 2 TABLETS (10 MG), QD
     Route: 048
     Dates: start: 20160916, end: 20160917
  15. DUPHALAC [Concomitant]
     Active Substance: LACTULOSE
     Indication: CONSTIPATION PROPHYLAXIS
     Dosage: 15 ML, TID
     Route: 048
     Dates: start: 20160910
  16. MAGNESIN (MAGNESIUM SULFATE) [Concomitant]
     Indication: PROPHYLAXIS
     Dosage: 10 ML, BID
     Route: 042
     Dates: start: 20160922, end: 20160922
  17. PLAKON [Concomitant]
     Indication: ALLERGY PROPHYLAXIS
     Dosage: 1.5 MG, ONCE; STRENGTH: 3MG/2ML
     Route: 030
     Dates: start: 20161018, end: 20161018
  18. POTASSIUM CHLORIDE. [Concomitant]
     Active Substance: POTASSIUM CHLORIDE
     Dosage: 10 ML, BID
     Route: 042
     Dates: start: 20161018, end: 20161018
  19. DEXAMETHASONE. [Concomitant]
     Active Substance: DEXAMETHASONE
     Indication: PROPHYLAXIS OF NAUSEA AND VOMITING
     Dosage: 0.5 MG, BID
     Route: 048
     Dates: start: 20161018, end: 20161021
  20. LASIX [Concomitant]
     Active Substance: FUROSEMIDE
     Dosage: 20 MG, ONCE
     Route: 042
     Dates: start: 20161018, end: 20161018
  21. MACPERAN [Concomitant]
     Active Substance: METOCLOPRAMIDE HYDROCHLORIDE
     Indication: PROPHYLAXIS AGAINST GASTROINTESTINAL ULCER
     Dosage: 1 TABLET, TID
     Route: 048
     Dates: start: 20160923, end: 20160927
  22. URSA COMPLEX [Concomitant]
     Indication: PROPHYLAXIS
     Dosage: 1 TABLET, BID
     Route: 048
     Dates: start: 20160913
  23. STILNOX [Concomitant]
     Active Substance: ZOLPIDEM TARTRATE
     Indication: PROPHYLAXIS
     Dosage: 1 TABLET (6.25 MG), QD
     Route: 048
     Dates: start: 20161005
  24. CISPLATIN. [Concomitant]
     Active Substance: CISPLATIN
     Indication: LUNG NEOPLASM MALIGNANT
     Dosage: 118 MG, ONCE; CYCLE 2
     Route: 042
     Dates: start: 20161018, end: 20161018
  25. DEXAMETHASONE. [Concomitant]
     Active Substance: DEXAMETHASONE
     Indication: PROPHYLAXIS OF NAUSEA AND VOMITING
     Dosage: 5 MG, ONCE
     Route: 042
     Dates: start: 20160922, end: 20160922
  26. LASIX [Concomitant]
     Active Substance: FUROSEMIDE
     Indication: PROPHYLAXIS
     Dosage: 20 MG, ONCE
     Route: 042
     Dates: start: 20160922, end: 20160922
  27. MACPERAN [Concomitant]
     Active Substance: METOCLOPRAMIDE HYDROCHLORIDE
     Indication: PROPHYLAXIS AGAINST GASTROINTESTINAL ULCER
     Dosage: 10 MG, ONCE
     Route: 042
     Dates: start: 20161018, end: 20161018
  28. PEMETREXED DISODIUM [Concomitant]
     Active Substance: PEMETREXED DISODIUM
     Indication: LUNG NEOPLASM MALIGNANT
     Dosage: 790 MG, ONCE; CYCLE 2
     Route: 042
     Dates: start: 20161018, end: 20161018
  29. DEXAMETHASONE. [Concomitant]
     Active Substance: DEXAMETHASONE
     Dosage: 5 MG, QD
     Route: 042
     Dates: start: 20161018, end: 20161101
  30. DIFLUCAN [Concomitant]
     Active Substance: FLUCONAZOLE
     Dosage: 1 CAPSULE (50 MG), ONCE
     Route: 048
     Dates: start: 20161101, end: 20161101
  31. FOLIC ACID. [Concomitant]
     Active Substance: FOLIC ACID
     Indication: ANAEMIA PROPHYLAXIS
     Dosage: 1 TABLET (1 MG), QD
     Route: 048
     Dates: start: 20160913
  32. POTASSIUM CHLORIDE. [Concomitant]
     Active Substance: POTASSIUM CHLORIDE
     Indication: PROPHYLAXIS
     Dosage: 10 ML, BID
     Route: 042
     Dates: start: 20160922, end: 20160922

REACTIONS (3)
  - Diarrhoea [Recovered/Resolved]
  - Delirium [Recovered/Resolved]
  - Iliac artery occlusion [Recovered/Resolved]

NARRATIVE: CASE EVENT DATE: 20161018
